FAERS Safety Report 7148901-8 (Version None)
Quarter: 2010Q4

REPORT INFORMATION
  Report Type: 
  Country: None (occurrence: None)
  Receive Date: 20101209
  Receipt Date: 20101129
  Transmission Date: 20110411
  Serious: Yes (Hospitalization, Congenital Anomaly)
  Sender: FDA-Public Use
  Company Number: A0681487A

PATIENT
  Sex: Male

DRUGS (2)
  1. PAXIL [Suspect]
     Indication: DEPRESSION
     Dosage: 20MG PER DAY
  2. PRENATAL VITAMINS [Concomitant]

REACTIONS (6)
  - CONGENITAL ANOMALY [None]
  - DRUG EXPOSURE DURING PREGNANCY [None]
  - LARYNGOMALACIA [None]
  - PULMONARY INTERSTITIAL EMPHYSEMA SYNDROME [None]
  - PULMONARY MALFORMATION [None]
  - RESPIRATORY DISTRESS [None]
